FAERS Safety Report 8902527 (Version 1)
Quarter: 2012Q4

REPORT INFORMATION
  Report Type: 
  Country: US (occurrence: US)
  Receive Date: 20121112
  Receipt Date: 20121112
  Transmission Date: 20130627
  Serious: Yes (Other)
  Sender: FDA-Public Use
  Company Number: US-PFIZER INC-2012281465

PATIENT
  Age: 82 Year
  Sex: Female
  Weight: 61.68 kg

DRUGS (2)
  1. LIPITOR [Suspect]
     Indication: HIGH CHOLESTEROL
     Dosage: 20 mg, daily
     Route: 048
  2. INDAPAMIDE [Concomitant]
     Dosage: 1.25 mg, daily

REACTIONS (1)
  - Hearing impaired [Unknown]
